FAERS Safety Report 18415925 (Version 1)
Quarter: 2020Q4

REPORT INFORMATION
  Report Type: Spontaneous
  Country: US (occurrence: US)
  Receive Date: 20201022
  Receipt Date: 20201022
  Transmission Date: 20210114
  Serious: Yes (Hospitalization)
  Sender: FDA-Public Use
  Company Number: None

PATIENT
  Age: 64 Year
  Sex: Female

DRUGS (10)
  1. ATOVAQUONE. [Concomitant]
     Active Substance: ATOVAQUONE
  2. PREDNISONE. [Concomitant]
     Active Substance: PREDNISONE
  3. ENTECAVIR. [Suspect]
     Active Substance: ENTECAVIR
     Indication: POLYNEUROPATHY
     Route: 048
  4. CITALOPRAM [Concomitant]
     Active Substance: CITALOPRAM HYDROBROMIDE
  5. DAPSONE. [Concomitant]
     Active Substance: DAPSONE
  6. ESTRADIOL. [Concomitant]
     Active Substance: ESTRADIOL
  7. GABAPENTIN. [Concomitant]
     Active Substance: GABAPENTIN
  8. OMEPRAZOLE. [Concomitant]
     Active Substance: OMEPRAZOLE
  9. ONDANSETRON [Concomitant]
     Active Substance: ONDANSETRON
  10. CRESEMBA [Concomitant]
     Active Substance: ISAVUCONAZONIUM SULFATE

REACTIONS (1)
  - Therapy interrupted [None]

NARRATIVE: CASE EVENT DATE: 20201019
